FAERS Safety Report 7749846-2 (Version None)
Quarter: 2011Q3

REPORT INFORMATION
  Report Type: 
  Country: None (occurrence: None)
  Receive Date: 20110914
  Receipt Date: 20110912
  Transmission Date: 20111222
  Serious: Yes (Other)
  Sender: FDA-Public Use
  Company Number: GR-ROCHE-802003

PATIENT
  Age: 62 Year
  Sex: Male
  Weight: 90 kg

DRUGS (3)
  1. AVASTIN [Suspect]
     Indication: LUNG ADENOCARCINOMA
     Route: 042
     Dates: start: 20110201
  2. TAXOTERE [Concomitant]
     Indication: LUNG ADENOCARCINOMA
     Dates: start: 20110201
  3. AVASTIN [Suspect]
     Route: 042
     Dates: start: 20110401

REACTIONS (2)
  - DIPLOPIA [None]
  - DIZZINESS [None]
